FAERS Safety Report 21533802 (Version 1)
Quarter: 2022Q4

REPORT INFORMATION
  Report Type: Spontaneous
  Country: US (occurrence: None)
  Receive Date: 20221031
  Receipt Date: 20221031
  Transmission Date: 20230112
  Serious: Yes (Hospitalization, Other)
  Sender: FDA-Public Use
  Company Number: None

PATIENT
  Age: 65 Year
  Sex: Female
  Weight: 67.1 kg

DRUGS (8)
  1. BEBTELOVIMAB [Suspect]
     Active Substance: BEBTELOVIMAB
     Indication: COVID-19
     Dosage: FREQUENCY : ONCE;?
     Route: 042
     Dates: start: 20221026, end: 20221026
  2. Dexamethasone 6 mg [Concomitant]
     Dates: start: 20221026
  3. Albuterol 2.5mg/3mL [Concomitant]
     Dates: start: 20221027
  4. AMLODIPINE [Concomitant]
     Active Substance: AMLODIPINE BESYLATE
     Dates: start: 20221027
  5. FLUTICASONE PROPIONATE [Concomitant]
     Active Substance: FLUTICASONE PROPIONATE
     Dates: start: 20221027
  6. Ipratropium nebulized solution [Concomitant]
     Dates: start: 20221027
  7. TADALAFIL [Concomitant]
     Active Substance: TADALAFIL
     Dates: start: 20221027
  8. WARFARIN [Concomitant]
     Active Substance: WARFARIN
     Dates: start: 20221027

REACTIONS (5)
  - Hot flush [None]
  - Back pain [None]
  - Tachycardia [None]
  - Hypertension [None]
  - Oxygen saturation decreased [None]

NARRATIVE: CASE EVENT DATE: 20221026
